FAERS Safety Report 13585878 (Version 1)
Quarter: 2017Q2

REPORT INFORMATION
  Report Type: Spontaneous
  Country: US (occurrence: US)
  Receive Date: 20170526
  Receipt Date: 20170526
  Transmission Date: 20170830
  Serious: No
  Sender: FDA-Public Use
  Company Number: US-MYLANLABS-2016M1052488

PATIENT
  Age: 55 Year
  Sex: Female

DRUGS (1)
  1. PAROXETINE EXTENDED-RELEASE TABLETS USP [Suspect]
     Active Substance: PAROXETINE
     Indication: ANXIETY
     Dosage: 25 MG, HS
     Route: 048
     Dates: start: 20161017

REACTIONS (5)
  - Depressed mood [Not Recovered/Not Resolved]
  - Feeling abnormal [Not Recovered/Not Resolved]
  - Insomnia [Not Recovered/Not Resolved]
  - Agitation [Not Recovered/Not Resolved]
  - Wrong technique in product usage process [Recovered/Resolved]

NARRATIVE: CASE EVENT DATE: 201611
